FAERS Safety Report 11413927 (Version 3)
Quarter: 2015Q3

REPORT INFORMATION
  Report Type: Spontaneous
  Country: US (occurrence: US)
  Receive Date: 20150824
  Receipt Date: 20150928
  Transmission Date: 20151125
  Serious: Yes (Hospitalization, Other)
  Sender: FDA-Public Use
  Company Number: US-GLAXOSMITHKLINE-US2015GSK120567

PATIENT
  Age: 63 Year
  Sex: Female

DRUGS (1)
  1. TANZEUM [Suspect]
     Active Substance: ALBIGLUTIDE
     Indication: TYPE 2 DIABETES MELLITUS
     Dosage: 50 MG, WE
     Route: 042
     Dates: start: 201507

REACTIONS (4)
  - Nephrolithiasis [Unknown]
  - Renal impairment [Unknown]
  - Device use error [Unknown]
  - Emergency care [Unknown]

NARRATIVE: CASE EVENT DATE: 201507
